FAERS Safety Report 17886798 (Version 1)
Quarter: 2020Q2

REPORT INFORMATION
  Report Type: Spontaneous
  Country: CN (occurrence: CN)
  Receive Date: 20200611
  Receipt Date: 20200611
  Transmission Date: 20200714
  Serious: Yes (Other)
  Sender: FDA-Public Use
  Company Number: CN-PFIZER INC-2020225937

PATIENT
  Age: 55 Year
  Sex: Female
  Weight: 60 kg

DRUGS (1)
  1. CELECOXIB. [Suspect]
     Active Substance: CELECOXIB
     Indication: SPINAL DISORDER
     Dosage: 0.2 G, 1X/DAY
     Route: 048
     Dates: start: 20200606, end: 20200606

REACTIONS (7)
  - Pruritus [Recovering/Resolving]
  - Off label use [Unknown]
  - Hypersensitivity [Recovering/Resolving]
  - Facial pain [Recovering/Resolving]
  - Erythema [Recovering/Resolving]
  - Swelling face [Recovering/Resolving]
  - Product use in unapproved indication [Unknown]

NARRATIVE: CASE EVENT DATE: 20200606
